FAERS Safety Report 6900237-3 (Version None)
Quarter: 2010Q3

REPORT INFORMATION
  Report Type: 
  Country: None (occurrence: None)
  Receive Date: 20100803
  Receipt Date: 20100722
  Transmission Date: 20110219
  Serious: Yes (Hospitalization)
  Sender: FDA-Public Use
  Company Number: US-ROCHE-717457

PATIENT
  Age: 43 Year
  Sex: Male
  Weight: 93 kg

DRUGS (11)
  1. BEVACIZUMAB [Suspect]
     Route: 042
     Dates: start: 20100629
  2. DOCETAXEL [Suspect]
     Route: 042
     Dates: start: 20100706
  3. CISPLATIN [Suspect]
     Route: 042
     Dates: start: 20100706
  4. IRINOTECAN HCL [Suspect]
     Route: 042
     Dates: start: 20100706
  5. ASPIRIN [Concomitant]
  6. COMPAZINE [Concomitant]
  7. COUMADIN [Concomitant]
  8. OXYCODONE HCL AND ACETAMINOPHEN [Concomitant]
  9. DICYCLOMINE [Concomitant]
  10. LORTAB [Concomitant]
  11. NEXIUM [Concomitant]

REACTIONS (1)
  - APPENDICITIS [None]
